FAERS Safety Report 8904055 (Version 2)
Quarter: 2013Q1

REPORT INFORMATION
  Report Type: Spontaneous
  Country: US (occurrence: US)
  Receive Date: 20121112
  Receipt Date: 20130109
  Transmission Date: 20140127
  Serious: No
  Sender: FDA-Public Use
  Company Number: US-ASTRAZENECA-2012SE80205

PATIENT
  Age: 84 Year
  Sex: Female

DRUGS (2)
  1. SYMBICORT PMDI [Suspect]
     Dosage: UNKNOWN
     Route: 055
  2. PREDNISOLONE [Concomitant]

REACTIONS (5)
  - Lung infection [Unknown]
  - Multiple allergies [Unknown]
  - Lung disorder [Unknown]
  - Pharyngeal disorder [Unknown]
  - Dysphonia [Unknown]
